FAERS Safety Report 9528220 (Version 2)
Quarter: 2013Q4

REPORT INFORMATION
  Report Type: Spontaneous
  Country: JP (occurrence: JP)
  Receive Date: 20130917
  Receipt Date: 20131216
  Transmission Date: 20140711
  Serious: Yes (Other)
  Sender: FDA-Public Use
  Company Number: PHHY2013JP101622

PATIENT
  Age: 65 Year
  Sex: Male

DRUGS (2)
  1. FAMVIR [Suspect]
     Indication: HERPES ZOSTER
     Dosage: 500 MG, TID
     Route: 048
     Dates: start: 20130905, end: 20130906
  2. LYRICA [Suspect]
     Dosage: UNK UKN, UNK
     Route: 048

REACTIONS (4)
  - Gait disturbance [Not Recovered/Not Resolved]
  - Muscular weakness [Unknown]
  - Aphagia [Unknown]
  - Altered state of consciousness [Recovered/Resolved]
